FAERS Safety Report 10995851 (Version 2)
Quarter: 2015Q2

REPORT INFORMATION
  Report Type: Spontaneous
  Country: US (occurrence: US)
  Receive Date: 20150407
  Receipt Date: 20150617
  Transmission Date: 20150821
  Serious: No
  Sender: FDA-Public Use
  Company Number: US-009507513-1503USA013579

PATIENT
  Sex: Female

DRUGS (7)
  1. LAMOTRIGINE. [Concomitant]
     Active Substance: LAMOTRIGINE
     Dosage: 2 TABLET
     Route: 048
     Dates: start: 20150414
  2. SPIRONOLACTONE. [Concomitant]
     Active Substance: SPIRONOLACTONE
  3. DULOXETINE HYDROCHLORIDE. [Concomitant]
     Active Substance: DULOXETINE HYDROCHLORIDE
     Dosage: 1 CAPSULE
     Route: 048
     Dates: start: 20150210
  4. COZAAR [Suspect]
     Active Substance: LOSARTAN POTASSIUM
     Indication: HYPERTENSION
     Dosage: 50 MG, QD
     Route: 048
     Dates: start: 2015
  5. DIGOXIN. [Concomitant]
     Active Substance: DIGOXIN
     Dosage: STRENGTH: 0.125 (UNITES  UNSPECIFIED),  1 TABLET
     Route: 048
     Dates: start: 2009
  6. POTASSIUM (UNSPECIFIED) [Concomitant]
     Active Substance: POTASSIUM
  7. LEVOTHYROXINE SODIUM. [Concomitant]
     Active Substance: LEVOTHYROXINE SODIUM
     Dosage: 1 TABLET
     Route: 048
     Dates: start: 2009

REACTIONS (2)
  - Muscle tightness [Not Recovered/Not Resolved]
  - Depression [Recovered/Resolved]

NARRATIVE: CASE EVENT DATE: 2015
